FAERS Safety Report 9414610 (Version 2)
Quarter: 2013Q4

REPORT INFORMATION
  Report Type: Spontaneous
  Country: FR (occurrence: FR)
  Receive Date: 20130723
  Receipt Date: 20131015
  Transmission Date: 20140711
  Serious: Yes (Hospitalization)
  Sender: FDA-Public Use
  Company Number: FR-PFIZER INC-2013209992

PATIENT
  Age: 44 Year
  Sex: Male

DRUGS (5)
  1. LYRICA [Suspect]
     Dosage: 150 MG, 2X/DAY
     Route: 048
     Dates: end: 20130424
  2. LYRICA [Suspect]
     Dosage: 150 MG, 2X/DAY
     Route: 048
     Dates: start: 20130526
  3. LEVOTHYROX [Concomitant]
     Dosage: UNK
  4. GUTRON [Concomitant]
     Dosage: UNK
  5. RIVOTRIL [Concomitant]
     Dosage: UNK

REACTIONS (7)
  - Myoclonus [Recovered/Resolved]
  - Dyskinesia [Recovered/Resolved]
  - Somnolence [Recovered/Resolved]
  - Thrombocytopenia [Recovered/Resolved]
  - Anaemia [Unknown]
  - Pseudomonas infection [Unknown]
  - Bone marrow myelogram abnormal [Unknown]
